FAERS Safety Report 13110003 (Version 1)
Quarter: 2017Q1

REPORT INFORMATION
  Report Type: Spontaneous
  Country: US (occurrence: US)
  Receive Date: 20170112
  Receipt Date: 20170112
  Transmission Date: 20170428
  Serious: Yes (Death)
  Sender: FDA-Public Use
  Company Number: US-ROCHE-1209710

PATIENT
  Age: 49 Year
  Sex: Male

DRUGS (1)
  1. ACTILYSE [Suspect]
     Active Substance: ALTEPLASE
     Indication: BASILAR ARTERY THROMBOSIS
     Route: 065

REACTIONS (2)
  - Cerebral haematoma [Fatal]
  - Drug ineffective [Fatal]
